FAERS Safety Report 17843781 (Version 2)
Quarter: 2020Q3

REPORT INFORMATION
  Report Type: Report from Study
  Country: None (occurrence: US)
  Receive Date: 20200531
  Receipt Date: 20200705
  Transmission Date: 20201103
  Serious: Yes (Hospitalization)
  Sender: FDA-Public Use
  Company Number: US-ABBVIE-20K-163-3422378-00

PATIENT
  Sex: Female

DRUGS (1)
  1. HUMIRA [Suspect]
     Active Substance: ADALIMUMAB
     Indication: RHEUMATOID ARTHRITIS
     Route: 058
     Dates: start: 20200329

REACTIONS (12)
  - Injection site bruising [Not Recovered/Not Resolved]
  - Back pain [Not Recovered/Not Resolved]
  - Joint stiffness [Recovering/Resolving]
  - Cardiac failure congestive [Unknown]
  - Abdominal distension [Unknown]
  - Arthralgia [Recovering/Resolving]
  - Loss of personal independence in daily activities [Recovering/Resolving]
  - Joint swelling [Recovering/Resolving]
  - Insomnia [Unknown]
  - Musculoskeletal stiffness [Recovering/Resolving]
  - Discomfort [Unknown]
  - Pain in extremity [Recovering/Resolving]

NARRATIVE: CASE EVENT DATE: 2020
